FAERS Safety Report 10409932 (Version 1)
Quarter: 2014Q3

REPORT INFORMATION
  Report Type: Spontaneous
  Country: US (occurrence: None)
  Receive Date: 20140822
  Receipt Date: 20140822
  Transmission Date: 20150326
  Serious: Yes (Other)
  Sender: FDA-Public Use
  Company Number: 201408039

PATIENT
  Age: 75 Year
  Sex: Male
  Weight: 108.86 kg

DRUGS (1)
  1. TESTIM [Suspect]
     Active Substance: TESTOSTERONE
     Indication: ANDROGEN REPLACEMENT THERAPY
     Dosage: 1 IN 1 D, TRANSDERMAL
     Route: 062
     Dates: start: 201402

REACTIONS (3)
  - Blood testosterone decreased [None]
  - Coronary artery bypass [None]
  - Drug ineffective [None]

NARRATIVE: CASE EVENT DATE: 20140520
